FAERS Safety Report 12506973 (Version 1)
Quarter: 2016Q2

REPORT INFORMATION
  Report Type: Report from Study
  Country: US (occurrence: US)
  Receive Date: 20160629
  Receipt Date: 20160629
  Transmission Date: 20160815
  Serious: Yes (Hospitalization, Other)
  Sender: FDA-Public Use
  Company Number: US-AMGEN-USASL2016081434

PATIENT
  Age: 19 Year
  Sex: Male

DRUGS (3)
  1. ENBREL [Suspect]
     Active Substance: ETANERCEPT
     Indication: RHEUMATOID ARTHRITIS
     Dosage: UNK UNK, QWK
     Route: 065
     Dates: start: 2015, end: 201604
  2. ENBREL [Suspect]
     Active Substance: ETANERCEPT
     Indication: TENDONITIS
  3. ENBREL [Suspect]
     Active Substance: ETANERCEPT
     Indication: VON WILLEBRAND^S DISEASE

REACTIONS (3)
  - Influenza like illness [Unknown]
  - Arthralgia [Unknown]
  - Nephrolithiasis [Unknown]
